FAERS Safety Report 8953372 (Version 1)
Quarter: 2012Q4

REPORT INFORMATION
  Report Type: Report from Study
  Country: US (occurrence: US)
  Receive Date: 20121206
  Receipt Date: 20121206
  Transmission Date: 20130627
  Serious: Yes (Other)
  Sender: FDA-Public Use
  Company Number: US-JNJFOC-20121114875

PATIENT
  Age: 11 None
  Sex: Male
  Weight: 31.3 kg

DRUGS (4)
  1. REMICADE [Suspect]
     Indication: CROHN^S DISEASE
     Route: 042
     Dates: start: 201110
  2. REMICADE [Suspect]
     Indication: CROHN^S DISEASE
     Route: 042
     Dates: start: 201209
  3. MULTIVITAMINS [Concomitant]
     Route: 065
     Dates: start: 201010
  4. CALCIUM AND VITAMIN D [Concomitant]
     Route: 065
     Dates: start: 201010

REACTIONS (5)
  - Eosinophil count increased [Not Recovered/Not Resolved]
  - Unevaluable event [Recovered/Resolved]
  - Amylase increased [Not Recovered/Not Resolved]
  - Nausea [Recovered/Resolved]
  - Oral herpes [Recovered/Resolved]
